FAERS Safety Report 7593720-1 (Version None)
Quarter: 2011Q3

REPORT INFORMATION
  Report Type: 
  Country: None (occurrence: None)
  Receive Date: 20110706
  Receipt Date: 20110622
  Transmission Date: 20111222
  Serious: Yes (Hospitalization, Other)
  Sender: FDA-Public Use
  Company Number: PHHY2010DE27970

PATIENT
  Sex: Male
  Weight: 83 kg

DRUGS (15)
  1. METOPROLOL SUCCINATE [Concomitant]
     Indication: CORONARY ARTERY DISEASE
     Dosage: 142.5 UKN, UNK
     Route: 048
     Dates: start: 20081027
  2. MOXONIDINE [Concomitant]
     Indication: HYPERTENSION
     Dosage: 0.4 MG, UNK
     Route: 048
     Dates: start: 20100223
  3. PENTAERYTHRITOL TETRANITRATE [Concomitant]
     Indication: CORONARY ARTERY DISEASE
     Route: 048
     Dates: start: 20070827
  4. FLUVASTATIN SODIUM [Suspect]
     Indication: HYPERLIPIDAEMIA
     Dosage: 80 MG, PER DAY
     Dates: start: 20051201, end: 20100223
  5. MIRTAZAPINE [Concomitant]
     Indication: RESTLESSNESS
     Route: 048
     Dates: start: 20090820, end: 20090828
  6. PANTOPRAZOLE [Concomitant]
     Dosage: 40 MG, UNK
     Route: 048
     Dates: start: 20090820, end: 20090825
  7. EBRANTIL [Suspect]
     Indication: HYPERTENSION
     Dosage: 60 MG, UNK
     Route: 048
     Dates: start: 20081027, end: 20100223
  8. ALISKIREN [Suspect]
     Dosage: 150 MG, UNK
     Route: 048
  9. TORSEMIDE [Concomitant]
     Indication: HYPERTENSION
     Dosage: 10 MG, UNK
     Route: 048
     Dates: start: 20051201
  10. RAMIPRIL [Concomitant]
     Indication: HYPERTENSION
     Dosage: 10 MG, UNK
     Route: 048
     Dates: start: 20061128, end: 20100223
  11. ALISKIREN [Suspect]
     Indication: HYPERTENSION
     Dosage: 300 MG, PER DAY
     Route: 048
     Dates: start: 20081117
  12. ALLOPURINOL [Concomitant]
     Indication: GOUT
     Dosage: 100 MG, UNK
     Route: 048
     Dates: start: 20070827
  13. AMLODIPINE [Concomitant]
     Indication: HYPERTENSION
     Route: 048
     Dates: start: 20070827, end: 20100223
  14. ASPIRIN [Concomitant]
     Indication: CORONARY ARTERY DISEASE
     Dosage: 100 MG, UNK
     Route: 048
     Dates: start: 19960601
  15. DIOVAN [Suspect]
     Dosage: 160 MG, UNK
     Route: 048
     Dates: start: 20100223

REACTIONS (13)
  - BLOOD CREATININE INCREASED [None]
  - HYPERLIPIDAEMIA [None]
  - HYPERALBUMINAEMIA [None]
  - LEFT VENTRICULAR HYPERTROPHY [None]
  - BLOOD POTASSIUM INCREASED [None]
  - HYPERTENSIVE CRISIS [None]
  - DRUG INEFFECTIVE [None]
  - CREATININE URINE INCREASED [None]
  - CORONARY ARTERY DISEASE [None]
  - HAEMOGLOBIN DECREASED [None]
  - HYPONATRAEMIA [None]
  - C-REACTIVE PROTEIN INCREASED [None]
  - DYSPNOEA [None]
